FAERS Safety Report 9697276 (Version 6)
Quarter: 2015Q1

REPORT INFORMATION
  Report Type: Spontaneous
  Country: JP (occurrence: JP)
  Receive Date: 20131120
  Receipt Date: 20150310
  Transmission Date: 20150721
  Serious: Yes (Other)
  Sender: FDA-Public Use
  Company Number: JP-ROCHE-1305555

PATIENT
  Age: 89 Year
  Sex: Female

DRUGS (5)
  1. LUCENTIS [Suspect]
     Active Substance: RANIBIZUMAB
     Indication: AGE-RELATED MACULAR DEGENERATION
     Dosage: DOSAGE IN RIGHT EYE
     Route: 050
     Dates: start: 20131001, end: 20131029
  2. LUCENTIS [Suspect]
     Active Substance: RANIBIZUMAB
     Dosage: DOSAGE IN RIGHT EYE
     Route: 050
     Dates: start: 20131029, end: 20131113
  3. LIVALO [Concomitant]
     Active Substance: PITAVASTATIN CALCIUM
  4. CRAVIT [Concomitant]
     Active Substance: LEVOFLOXACIN
     Route: 065
     Dates: start: 201310
  5. VISUDYNE [Concomitant]
     Active Substance: VERTEPORFIN
     Route: 065
     Dates: start: 2007

REACTIONS (1)
  - Transient ischaemic attack [Recovering/Resolving]

NARRATIVE: CASE EVENT DATE: 20131106
